FAERS Safety Report 7738835-X (Version None)
Quarter: 2011Q3

REPORT INFORMATION
  Report Type: 
  Country: None (occurrence: None)
  Receive Date: 20110909
  Receipt Date: 20110902
  Transmission Date: 20111222
  Serious: Yes (Other)
  Sender: FDA-Public Use
  Company Number: IT-BIOGENIDEC-2011BI019247

PATIENT
  Age: 25 Year
  Sex: Male

DRUGS (2)
  1. TYSABRI [Suspect]
     Indication: RELAPSING-REMITTING MULTIPLE SCLEROSIS
     Route: 042
     Dates: start: 20100603, end: 20100916
  2. GLATIRAMER ACETATE [Concomitant]
     Indication: RELAPSING-REMITTING MULTIPLE SCLEROSIS

REACTIONS (16)
  - HYPOTENSION [None]
  - PALLOR [None]
  - VOMITING [None]
  - CEREBELLAR SYNDROME [None]
  - NUCLEAR MAGNETIC RESONANCE IMAGING ABNORMAL [None]
  - DIZZINESS [None]
  - DIPLOPIA [None]
  - MULTIPLE SCLEROSIS [None]
  - CONDITION AGGRAVATED [None]
  - ATAXIA [None]
  - DYSSTASIA [None]
  - BRADYCARDIA [None]
  - DEAFNESS UNILATERAL [None]
  - HYPOAESTHESIA [None]
  - PRESYNCOPE [None]
  - VIITH NERVE PARALYSIS [None]
